FAERS Safety Report 18179916 (Version 2)
Quarter: 2020Q3

REPORT INFORMATION
  Report Type: Report from Study
  Country: TW (occurrence: TW)
  Receive Date: 20200821
  Receipt Date: 20200904
  Transmission Date: 20201103
  Serious: Yes (Hospitalization)
  Sender: FDA-Public Use
  Company Number: NVSC2020TW228192

PATIENT
  Age: 47 Year
  Sex: Male
  Weight: 74 kg

DRUGS (2)
  1. SPARTALIZUMAB [Suspect]
     Active Substance: SPARTALIZUMAB
     Indication: SQUAMOUS CELL CARCINOMA OF HEAD AND NECK
     Dosage: 400 MG, UNK
     Route: 042
     Dates: start: 20200528, end: 20200724
  2. LEE011 [Suspect]
     Active Substance: RIBOCICLIB
     Indication: SQUAMOUS CELL CARCINOMA OF HEAD AND NECK
     Dosage: 600 MG, UNK
     Route: 048
     Dates: start: 20200528, end: 20200812

REACTIONS (1)
  - Immune thrombocytopenia [Recovered/Resolved]

NARRATIVE: CASE EVENT DATE: 20200812
